FAERS Safety Report 8778823 (Version 1)
Quarter: 2012Q4

REPORT INFORMATION
  Report Type: 
  Country: US (occurrence: US)
  Receive Date: 20120912
  Receipt Date: 20120912
  Transmission Date: 20130627
  Serious: Yes (Life-Threatening, Hospitalization)
  Sender: FDA-Public Use
  Company Number: PHEH2012US017592

PATIENT
  Sex: Female

DRUGS (1)
  1. EXJADE [Suspect]
     Indication: IRON OVERLOAD
     Dosage: 1000 mg, QD
     Route: 048
     Dates: start: 20120620, end: 201208

REACTIONS (4)
  - Toxicity to various agents [Recovering/Resolving]
  - Blood pressure decreased [Recovered/Resolved]
  - Feeling abnormal [Recovering/Resolving]
  - Fatigue [Recovering/Resolving]
